FAERS Safety Report 11808551 (Version 1)
Quarter: 2015Q4

REPORT INFORMATION
  Report Type: Spontaneous
  Country: US (occurrence: US)
  Receive Date: 20151207
  Receipt Date: 20151207
  Transmission Date: 20160305
  Serious: No
  Sender: FDA-Public Use
  Company Number: US-ROCHE-1554757

PATIENT
  Sex: Female
  Weight: 99.8 kg

DRUGS (4)
  1. EYLEA [Suspect]
     Active Substance: AFLIBERCEPT
     Indication: DIABETIC RETINAL OEDEMA
     Route: 050
     Dates: start: 201410
  2. HUMALOG [Concomitant]
     Active Substance: INSULIN LISPRO
  3. LUCENTIS [Suspect]
     Active Substance: RANIBIZUMAB
     Indication: PRODUCT USED FOR UNKNOWN INDICATION
     Route: 065
     Dates: start: 201210
  4. HUMULIN NOS [Concomitant]
     Active Substance: INSULIN HUMAN

REACTIONS (4)
  - Drug ineffective [Unknown]
  - Vision blurred [Unknown]
  - Photophobia [Unknown]
  - Metamorphopsia [Unknown]

NARRATIVE: CASE EVENT DATE: 2014
